FAERS Safety Report 4375059-0 (Version None)
Quarter: 2004Q2

REPORT INFORMATION
  Report Type: 
  Country: None (occurrence: None)
  Receive Date: 20040607
  Receipt Date: 20030609
  Transmission Date: 20050107
  Serious: Yes (Other)
  Sender: FDA-Public Use
  Company Number: 339785

PATIENT
  Sex: 0

DRUGS (2)
  1. ISOTRETINOIN [Suspect]
     Indication: ACNE
     Dosage: 0.5 MG/KG DAILY ORAL
     Route: 048
     Dates: start: 20020615, end: 20030519
  2. MESIGYNA (ESTRADIOL VALERATE/NORETHINDRONE ENANTHATE) [Concomitant]

REACTIONS (3)
  - ADVERSE EVENT [None]
  - NO ADVERSE EFFECT [None]
  - PREGNANCY [None]
